FAERS Safety Report 23027130 (Version 2)
Quarter: 2023Q4

REPORT INFORMATION
  Report Type: Spontaneous
  Country: PL (occurrence: None)
  Receive Date: 20231004
  Receipt Date: 20231020
  Transmission Date: 20240110
  Serious: Yes (Hospitalization, Other)
  Sender: FDA-Public Use
  Company Number: 2023A223978

PATIENT
  Age: 20088 Day
  Sex: Male
  Weight: 100 kg

DRUGS (1)
  1. DAPAGLIFLOZIN [Suspect]
     Active Substance: DAPAGLIFLOZIN
     Indication: Cardiac failure
     Route: 048
     Dates: start: 20220913, end: 20230217

REACTIONS (2)
  - Pneumonia fungal [Unknown]
  - Product use issue [Unknown]

NARRATIVE: CASE EVENT DATE: 20230105
